FAERS Safety Report 24689251 (Version 1)
Quarter: 2024Q4

REPORT INFORMATION
  Report Type: Spontaneous
  Country: US (occurrence: US)
  Receive Date: 20241203
  Receipt Date: 20241203
  Transmission Date: 20250115
  Serious: No
  Sender: BRISTOL-MYERS SQUIBB COMPANY
  Company Number: US-BRISTOL-MYERS SQUIBB COMPANY-2024-182742

PATIENT
  Age: 16 Year
  Sex: Female

DRUGS (1)
  1. ORENCIA [Suspect]
     Active Substance: ABATACEPT
     Indication: Mixed connective tissue disease
     Dosage: DOSE : 87.5 MG IN 0.7 ML
     Route: 058

REACTIONS (2)
  - Device deployment issue [Unknown]
  - Off label use [Unknown]
